FAERS Safety Report 4604657-1 (Version None)
Quarter: 2005Q1

REPORT INFORMATION
  Report Type: 
  Country: None (occurrence: None)
  Receive Date: 20050116
  Receipt Date: 20041207
  Transmission Date: 20050727
  Serious: No
  Sender: FDA-Public Use
  Company Number: PHEH2004US13107

PATIENT
  Sex: Female

DRUGS (1)
  1. GLEEVEC [Suspect]
     Indication: CHRONIC LEUKAEMIA
     Dosage: ORAL
     Route: 048
     Dates: start: 20041101

REACTIONS (4)
  - CONTUSION [None]
  - MYALGIA [None]
  - NAUSEA [None]
  - SWELLING [None]
